FAERS Safety Report 7536774-0 (Version None)
Quarter: 2011Q2

REPORT INFORMATION
  Report Type: 
  Country: None (occurrence: None)
  Receive Date: 20110603
  Receipt Date: 20110519
  Transmission Date: 20111010
  Serious: Yes (Death, Hospitalization)
  Sender: FDA-Public Use
  Company Number: 2011MA005430

PATIENT
  Age: 48 Year
  Sex: Female
  Weight: 55 kg

DRUGS (4)
  1. CETUXIMAB [Concomitant]
  2. IRINOTECAN HYDROCHLORIDE [Suspect]
     Indication: COLON CANCER
     Dosage: 150 MG/M2
     Dates: start: 20080501
  3. LEUCOVORIN CALCIUM [Concomitant]
  4. FLUOROURACIL [Concomitant]

REACTIONS (6)
  - PNEUMONITIS [None]
  - PNEUMONIA [None]
  - VENTRICULAR ARRHYTHMIA [None]
  - PULMONARY EMBOLISM [None]
  - METABOLIC ACIDOSIS [None]
  - VENTRICULAR TACHYCARDIA [None]
